FAERS Safety Report 24056027 (Version 3)
Quarter: 2024Q3

REPORT INFORMATION
  Report Type: Spontaneous
  Country: DE (occurrence: DE)
  Receive Date: 20240705
  Receipt Date: 20240725
  Transmission Date: 20241016
  Serious: No
  Sender: CSL BEHRING
  Company Number: DE-BEH-2024174710

PATIENT
  Sex: Male

DRUGS (1)
  1. HIZENTRA [Suspect]
     Active Substance: HUMAN IMMUNOGLOBULIN G
     Indication: Multifocal motor neuropathy
     Dosage: 100 G, QMT
     Route: 065

REACTIONS (2)
  - Autoantibody positive [Unknown]
  - Off label use [Unknown]
